FAERS Safety Report 22622148 (Version 1)
Quarter: 2023Q2

REPORT INFORMATION
  Report Type: Report from Study
  Country: CN (occurrence: CN)
  Receive Date: 20230620
  Receipt Date: 20230620
  Transmission Date: 20230721
  Serious: Yes (Hospitalization)
  Sender: FDA-Public Use
  Company Number: CN-JNJFOC-20230550495

PATIENT
  Age: 63 Year
  Sex: Female
  Weight: 61 kg

DRUGS (15)
  1. AMIVANTAMAB [Suspect]
     Active Substance: AMIVANTAMAB
     Indication: Non-small cell lung cancer metastatic
     Dosage: LAST DOSE ON 06-JUN-2023
     Route: 042
     Dates: start: 20220721
  2. PEMETREXED [Concomitant]
     Active Substance: PEMETREXED
     Indication: Non-small cell lung cancer metastatic
     Route: 042
     Dates: start: 20220721, end: 20230516
  3. PEMETREXED [Concomitant]
     Active Substance: PEMETREXED
     Route: 042
     Dates: start: 20220721, end: 20230606
  4. CARBOPLATIN [Concomitant]
     Active Substance: CARBOPLATIN
     Indication: Non-small cell lung cancer metastatic
     Route: 042
     Dates: start: 20220721, end: 20220922
  5. VITAMINE 15 [Concomitant]
     Indication: Prophylaxis
     Route: 048
     Dates: start: 20220201
  6. FOLIC ACID [Concomitant]
     Active Substance: FOLIC ACID
     Indication: Prophylaxis
     Route: 048
     Dates: start: 20220711
  7. REBAMIPIDE [Concomitant]
     Active Substance: REBAMIPIDE
     Indication: Prophylaxis
     Route: 048
     Dates: start: 20230130
  8. FLURBIPROFEN [Concomitant]
     Active Substance: FLURBIPROFEN
     Indication: Back pain
     Route: 061
     Dates: start: 20230219
  9. PREGABALIN [Concomitant]
     Active Substance: PREGABALIN
     Indication: Back pain
     Route: 048
     Dates: start: 20230401
  10. EUCALYPTOL, LIMONENE AND PINENE [Concomitant]
     Indication: Productive cough
     Route: 048
     Dates: start: 20230404
  11. MORPHINE HYDROCHLORIDE [Concomitant]
     Active Substance: MORPHINE HYDROCHLORIDE
     Indication: Back pain
     Route: 048
     Dates: start: 20230512
  12. MOXIFLOXACIN HYDROCHLORIDE [Concomitant]
     Active Substance: MOXIFLOXACIN HYDROCHLORIDE
     Indication: Pneumonia
     Route: 048
     Dates: start: 20230515, end: 20230519
  13. HYDROCHLOROTHIAZIDE [Concomitant]
     Active Substance: HYDROCHLOROTHIAZIDE
     Indication: Oedema peripheral
     Route: 048
     Dates: start: 20230604
  14. NAFTIFINE HYDROCHLORIDE AND KETOCONAZOLE [Concomitant]
     Indication: Tinea pedis
     Route: 061
     Dates: start: 20230604
  15. SPIRONOLACTONE [Concomitant]
     Active Substance: SPIRONOLACTONE
     Indication: Oedema peripheral
     Route: 048
     Dates: start: 20230604

REACTIONS (2)
  - Abdominal pain [Recovered/Resolved]
  - Soft tissue infection [Not Recovered/Not Resolved]

NARRATIVE: CASE EVENT DATE: 20230520
